FAERS Safety Report 15467598 (Version 1)
Quarter: 2018Q4

REPORT INFORMATION
  Report Type: Spontaneous
  Country: US (occurrence: US)
  Receive Date: 20181005
  Receipt Date: 20181005
  Transmission Date: 20190204
  Serious: No
  Sender: FDA-Public Use
  Company Number: US-BION-007069

PATIENT
  Age: 58 Year
  Sex: Male
  Weight: 81 kg

DRUGS (1)
  1. BEXAROTENE CAPSULES BION [Suspect]
     Active Substance: BEXAROTENE
     Indication: MYCOSIS FUNGOIDES
     Dosage: STRENGTH: 75 MG
     Route: 048
     Dates: start: 20180312

REACTIONS (4)
  - Accidental exposure to product [Not Recovered/Not Resolved]
  - Product quality issue [Unknown]
  - Product dose omission [Not Recovered/Not Resolved]
  - Dizziness [Recovered/Resolved]

NARRATIVE: CASE EVENT DATE: 20180312
